FAERS Safety Report 4324803-7 (Version None)
Quarter: 2004Q1

REPORT INFORMATION
  Report Type: 
  Country: None (occurrence: None)
  Receive Date: 20040326
  Receipt Date: 20040316
  Transmission Date: 20041129
  Serious: Yes (Hospitalization)
  Sender: FDA-Public Use
  Company Number: FR-GLAXOSMITHKLINE-B0326802A

PATIENT
  Age: 79 Year
  Sex: Male

DRUGS (2)
  1. VALACYCLOVIR HCL [Suspect]
     Indication: HERPES ZOSTER
     Route: 065
     Dates: start: 20040220, end: 20040226
  2. AUGMENTIN [Suspect]
     Indication: SKIN INFECTION
     Route: 065
     Dates: start: 20040220, end: 20040226

REACTIONS (2)
  - PURPURA [None]
  - RASH ERYTHEMATOUS [None]
